FAERS Safety Report 7780214-3 (Version None)
Quarter: 2011Q3

REPORT INFORMATION
  Report Type: 
  Country: None (occurrence: None)
  Receive Date: 20110927
  Receipt Date: 20110927
  Transmission Date: 20111222
  Serious: Yes (Other)
  Sender: FDA-Public Use
  Company Number: None

PATIENT
  Age: 67 Year
  Sex: Female
  Weight: 70.306 kg

DRUGS (2)
  1. NEFAZODONE HCL [Suspect]
     Indication: DEPRESSION
     Dosage: 150  MG
     Route: 048
     Dates: start: 19960701, end: 20110801
  2. AMBIEN [Concomitant]
     Indication: INSOMNIA
     Dosage: 6.25 OR 12.5
     Route: 048
     Dates: start: 19960701, end: 20110515

REACTIONS (1)
  - COGNITIVE DISORDER [None]
